FAERS Safety Report 8123588-6 (Version None)
Quarter: 2012Q1

REPORT INFORMATION
  Report Type: 
  Country: None (occurrence: None)
  Receive Date: 20120208
  Receipt Date: 20120202
  Transmission Date: 20120608
  Serious: Yes (Other)
  Sender: FDA-Public Use
  Company Number: PHEH2012US002937

PATIENT
  Sex: Female

DRUGS (3)
  1. VIVELLE-DOT [Suspect]
     Dosage: 0.0375 MG, QW2
     Route: 062
  2. FENTANYL CITRATE [Suspect]
     Indication: PAIN
  3. PROGESTERONE [Suspect]

REACTIONS (2)
  - NEPHROLITHIASIS [None]
  - URINARY TRACT INFECTION [None]
